FAERS Safety Report 13914382 (Version 1)
Quarter: 2017Q3

REPORT INFORMATION
  Report Type: Spontaneous
  Country: US (occurrence: US)
  Receive Date: 20170828
  Receipt Date: 20170828
  Transmission Date: 20171127
  Serious: No
  Sender: FDA-Public Use
  Company Number: US-ROCHE-1122480

PATIENT
  Sex: Male

DRUGS (3)
  1. NUTROPIN [Suspect]
     Active Substance: SOMATROPIN
     Dosage: 1/2 DOSE
     Route: 065
  2. NUTROPIN [Suspect]
     Active Substance: SOMATROPIN
     Indication: HYPOTHALAMO-PITUITARY DISORDER
     Dosage: 1/4 DOSE
     Route: 065
  3. NUTROPIN [Suspect]
     Active Substance: SOMATROPIN
     Dosage: FULL DOSE
     Route: 065

REACTIONS (1)
  - Headache [Unknown]
